FAERS Safety Report 9367273 (Version 1)
Quarter: 2013Q2

REPORT INFORMATION
  Report Type: Spontaneous
  Country: FR (occurrence: FR)
  Receive Date: 20130625
  Receipt Date: 20130625
  Transmission Date: 20140414
  Serious: Yes (Death, Hospitalization)
  Sender: FDA-Public Use
  Company Number: FR-CUBIST PHARMACEUTICALS, INC.-2012S1000547

PATIENT
  Sex: 0

DRUGS (13)
  1. CUBICIN [Suspect]
     Indication: OSTEOMYELITIS
     Dosage: 700 MG, QD
     Route: 042
     Dates: start: 20120502, end: 20120516
  2. CUBICIN [Suspect]
     Indication: OFF LABEL USE
     Dosage: 500 MG, QD
     Route: 065
  3. ESIDREX [Suspect]
     Indication: PRODUCT USED FOR UNKNOWN INDICATION
     Dosage: 12.5 MG, ONCE DAILY
     Route: 048
     Dates: start: 20120418, end: 20120504
  4. VANCOMYCIN [Suspect]
     Indication: OSTEOMYELITIS
     Dosage: 2 G, ONCE DAILY
     Route: 042
     Dates: start: 20120427, end: 20120502
  5. VANCOMYCIN [Suspect]
     Route: 065
  6. CIPROX /00697201/ [Suspect]
     Indication: PRODUCT USED FOR UNKNOWN INDICATION
     Route: 065
  7. FUROSEMIDE [Suspect]
     Indication: PRODUCT USED FOR UNKNOWN INDICATION
     Dosage: 20 MG, QD
     Route: 042
     Dates: start: 20120427, end: 20120501
  8. RIFADINE /00146901/ [Suspect]
     Indication: OSTEOMYELITIS
     Dosage: UNK UNK, UNK
     Route: 048
     Dates: start: 20120502, end: 20120516
  9. HYZAAR [Concomitant]
     Indication: PRODUCT USED FOR UNKNOWN INDICATION
     Dosage: UNK UNK, UNK
     Route: 065
  10. IPERTEN [Concomitant]
     Indication: PRODUCT USED FOR UNKNOWN INDICATION
     Dosage: UNK UNK, UNK
     Route: 065
  11. KARDEGIC [Concomitant]
     Indication: PRODUCT USED FOR UNKNOWN INDICATION
     Dosage: UNK UNK, UNK
     Route: 065
  12. GENTALLINE [Concomitant]
     Indication: STAPHYLOCOCCAL INFECTION
     Dosage: UNK UNK, UNK
     Route: 065
     Dates: start: 20120425
  13. ORBENINE [Concomitant]
     Indication: PRODUCT USED FOR UNKNOWN INDICATION
     Dosage: UNK UNK, UNK
     Route: 065

REACTIONS (9)
  - Pleural disorder [Unknown]
  - Interstitial lung disease [Unknown]
  - Pleural effusion [Unknown]
  - Sepsis [Unknown]
  - Infection [Unknown]
  - Gastrointestinal haemorrhage [Unknown]
  - Blood creatine increased [Unknown]
  - Hypokalaemia [Recovered/Resolved]
  - Anaemia [Unknown]
